FAERS Safety Report 13933963 (Version 1)
Quarter: 2017Q3

REPORT INFORMATION
  Report Type: Spontaneous
  Country: US (occurrence: US)
  Receive Date: 20170904
  Receipt Date: 20170904
  Transmission Date: 20171127
  Serious: No
  Sender: FDA-Public Use
  Company Number: US-BIOGEN-2017BI00451831

PATIENT
  Sex: Female

DRUGS (3)
  1. TYSABRI [Suspect]
     Active Substance: NATALIZUMAB
     Route: 065
     Dates: start: 20140829, end: 20150402
  2. TYSABRI [Suspect]
     Active Substance: NATALIZUMAB
     Indication: MULTIPLE SCLEROSIS
     Route: 065
     Dates: start: 20090430, end: 20130402
  3. TYSABRI [Suspect]
     Active Substance: NATALIZUMAB
     Dates: start: 20151001

REACTIONS (2)
  - Upper respiratory tract infection [Recovered/Resolved]
  - Malaise [Recovered/Resolved]
